FAERS Safety Report 5299767-2 (Version None)
Quarter: 2007Q2

REPORT INFORMATION
  Report Type: 
  Country: None (occurrence: None)
  Receive Date: 20070410
  Receipt Date: 20061023
  Transmission Date: 20071010
  Serious: Yes (Death)
  Sender: FDA-Public Use
  Company Number: BRO-010777

PATIENT
  Age: 56 Year
  Sex: Male

DRUGS (2)
  1. IOPAMIDOL [Suspect]
     Indication: COLLAPSE OF LUNG
     Dosage: 200 ML ONCE IV
     Route: 042
     Dates: start: 20060921, end: 20060921
  2. IOPAMIDOL [Suspect]
     Indication: COMPUTERISED TOMOGRAM THORAX
     Dosage: 200 ML ONCE IV
     Route: 042
     Dates: start: 20060921, end: 20060921

REACTIONS (7)
  - CHILLS [None]
  - CONTRAST MEDIA REACTION [None]
  - MYALGIA [None]
  - NAUSEA [None]
  - PYREXIA [None]
  - RENAL FAILURE ACUTE [None]
  - WRONG TECHNIQUE IN DRUG USAGE PROCESS [None]
